FAERS Safety Report 26130512 (Version 2)
Quarter: 2025Q4

REPORT INFORMATION
  Report Type: Spontaneous
  Country: EU (occurrence: EU)
  Receive Date: 20251208
  Receipt Date: 20251210
  Transmission Date: 20260118
  Serious: Yes (Other)
  Sender: NOVARTIS
  Company Number: None

PATIENT
  Age: 29 Year
  Sex: Female

DRUGS (3)
  1. TAFINLAR [Suspect]
     Active Substance: DABRAFENIB MESYLATE
     Indication: Malignant melanoma stage III
     Dosage: 150 MG(DAL 29/11/2024 300 MG/DIE, TERAPIA CONTINUATIVA (DURATA DEL TRATTAMENTO PREVISTO: 12 MESI IN
     Route: 048
  2. MEKINIST [Suspect]
     Active Substance: TRAMETINIB DIMETHYL SULFOXIDE
     Indication: Malignant melanoma stage III
     Dosage: 2 MG (DAL 29/11/2024 2 MG/DIE, TERAPIA CONTINUATIVA (DURATA DEL TRATTAMENTO PREVISTO: 12 MESI IN CON
     Route: 048
  3. SERTRALINE [Concomitant]
     Active Substance: SERTRALINE HYDROCHLORIDE
     Indication: Product used for unknown indication
     Dosage: 100 MG
     Route: 065
     Dates: start: 202412

REACTIONS (1)
  - Immune-mediated enterocolitis [Recovered/Resolved]

NARRATIVE: CASE EVENT DATE: 20250227
